FAERS Safety Report 14568013 (Version 9)
Quarter: 2018Q3

REPORT INFORMATION
  Report Type: Spontaneous
  Country: DE (occurrence: DE)
  Receive Date: 20180223
  Receipt Date: 20180809
  Transmission Date: 20181010
  Serious: Yes (Hospitalization)
  Sender: FDA-Public Use
  Company Number: DE-TEVA-2018-DE-859299

PATIENT
  Sex: Female

DRUGS (25)
  1. DOXORUBICIN [Suspect]
     Active Substance: DOXORUBICIN
     Indication: B-CELL LYMPHOMA
     Dosage: 103 MG, CYCLICAL (ONCE PER CYCLE)
     Route: 042
     Dates: start: 20171121
  2. CYCLOPHOSPHAMIDE. [Suspect]
     Active Substance: CYCLOPHOSPHAMIDE
     Dosage: UNK
     Route: 042
     Dates: start: 20171205
  3. LEVOTHYROXINE SODIUM. [Concomitant]
     Active Substance: LEVOTHYROXINE SODIUM
     Indication: THYROID OPERATION
     Dosage: 150 MICROGRAM DAILY; 150 MUG, QD
     Route: 048
     Dates: start: 2017
  4. VINCRISTINE [Suspect]
     Active Substance: VINCRISTINE
     Indication: B-CELL LYMPHOMA
     Dosage: 2 MG, CYCLICAL (ONCE PER CYCLE)
     Route: 042
     Dates: start: 20171121
  5. RITUXIMAB. [Suspect]
     Active Substance: RITUXIMAB
     Dosage: 761 MG, CYCLICAL (ONCE PER CYCLE)
     Route: 042
     Dates: start: 20171116
  6. DOXORUBICIN [Suspect]
     Active Substance: DOXORUBICIN
     Route: 042
     Dates: start: 20171205
  7. INSULIN HUMAN [Concomitant]
     Active Substance: INSULIN HUMAN
     Indication: DIABETES MELLITUS
     Dosage: UNK (ACCORDING TO THE PLAN)
     Route: 048
     Dates: start: 2017
  8. ENOXAPARIN SODIUM. [Concomitant]
     Active Substance: ENOXAPARIN SODIUM
     Indication: PROPHYLAXIS
     Dosage: 2 ML DAILY; 2 ML, QD (FOR 29 DAYS)
     Route: 058
     Dates: start: 20171219, end: 20180116
  9. PREDNISOLONE. [Suspect]
     Active Substance: PREDNISOLONE
     Dosage: UNK
     Route: 048
     Dates: start: 20171205
  10. PANTOPRAZOL [Concomitant]
     Active Substance: PANTOPRAZOLE SODIUM
     Indication: PROPHYLAXIS
     Dosage: 40 MG, QD
     Route: 048
     Dates: start: 2017
  11. TRIMETHOPRIM SULFAMETHOXAZOLE [Concomitant]
     Active Substance: SULFAMETHOXAZOLE\TRIMETHOPRIM
     Indication: PROPHYLAXIS
     Dosage: 960 MG, (MON/WE/FR)
     Route: 048
     Dates: start: 2017
  12. ACICLOVIR [Concomitant]
     Active Substance: ACYCLOVIR
     Indication: PROPHYLAXIS
     Dosage: 600 MILLIGRAM DAILY; 200 MG, TID
     Route: 048
     Dates: start: 2017
  13. INSULIN GLARGINE [Concomitant]
     Active Substance: INSULIN GLARGINE
     Indication: DIABETES MELLITUS
     Dosage: 4 IU (INTERNATIONAL UNIT) DAILY; 4 IU, QD
     Route: 058
     Dates: start: 20171225
  14. RAMIPRIL. [Concomitant]
     Active Substance: RAMIPRIL
     Indication: HYPERTENSION
     Dosage: 5 MG, QD
     Route: 048
     Dates: start: 2017
  15. PREDNISOLONE. [Suspect]
     Active Substance: PREDNISOLONE
     Indication: B-CELL LYMPHOMA
     Dosage: 100 MG, CYCLICAL (5 TIMES PER CYCLE)
     Route: 048
     Dates: start: 20171111
  16. RITUXIMAB. [Suspect]
     Active Substance: RITUXIMAB
     Indication: B-CELL LYMPHOMA
     Dosage: 772 MG, CYCLICAL (ONCE PER CYCLE)
     Route: 042
     Dates: start: 20171116
  17. METAMIZOL NATRIUM [Concomitant]
     Indication: PAIN
     Dosage: 120 GTT DAILY; 30 GTT, UNK (FOUR TIMES)
     Route: 048
     Dates: start: 2017
  18. HYDROMORPHONE [Concomitant]
     Active Substance: HYDROMORPHONE
     Indication: PAIN
     Dosage: 8 MILLIGRAM DAILY; 4 MG, BID
     Route: 048
     Dates: start: 2017
  19. VINCRISTINE [Suspect]
     Active Substance: VINCRISTINE
     Dates: start: 20171205
  20. PEGFILGRASTIM [Suspect]
     Active Substance: PEGFILGRASTIM
     Indication: B-CELL LYMPHOMA
     Dosage: 6 MG, CYCLICAL (ONCE PER CYCLE)
     Route: 058
     Dates: start: 20171124
  21. BISOPROLOL [Concomitant]
     Active Substance: BISOPROLOL
     Indication: HYPERTENSION
     Dosage: 5 MG, QD
     Route: 048
     Dates: start: 2017
  22. TORSEMIDE. [Concomitant]
     Active Substance: TORSEMIDE
     Indication: HYPERTENSION
     Dosage: 5 MG, QD
     Route: 048
     Dates: start: 2017
  23. RITUXIMAB. [Suspect]
     Active Substance: RITUXIMAB
     Dosage: 761 MG, CYCLICAL (ONCE PER CYCLE)
     Route: 042
     Dates: start: 20171218
  24. CYCLOPHOSPHAMIDE. [Suspect]
     Active Substance: CYCLOPHOSPHAMIDE
     Indication: B-CELL LYMPHOMA
     Dosage: 1545 MG, CYCLICAL (ONCE PER CYCLE)
     Route: 042
     Dates: start: 20171121
  25. AMLODIPINE [Concomitant]
     Active Substance: AMLODIPINE BESYLATE
     Indication: HYPERTENSION
     Dosage: 5 MG, QD
     Route: 048
     Dates: start: 2017

REACTIONS (4)
  - Device related infection [Recovered/Resolved]
  - Pyrexia [Recovered/Resolved]
  - Urinary tract infection [Unknown]
  - Infection [Recovered/Resolved]

NARRATIVE: CASE EVENT DATE: 20171219
